FAERS Safety Report 5030712-0 (Version None)
Quarter: 2006Q2

REPORT INFORMATION
  Report Type: 
  Country: None (occurrence: None)
  Receive Date: 20060615
  Receipt Date: 20060602
  Transmission Date: 20061013
  Serious: Yes (Death)
  Sender: FDA-Public Use
  Company Number: HU200606000593

PATIENT
  Age: 33 Year
  Sex: Male

DRUGS (5)
  1. OLANZAPINE [Suspect]
     Indication: PSYCHOTIC DISORDER
     Dosage: 10 MG, 2/D, INTRAMUSCULAR
     Route: 030
     Dates: start: 20060522, end: 20060527
  2. EDNYT (ENALAPRIL MALEATE) [Concomitant]
  3. HALOPERIDOL [Concomitant]
  4. INSULATARD NPH HUMAN [Concomitant]
  5. ACTRAPID HUMAN (INSULIN HUMAN) [Concomitant]

REACTIONS (2)
  - BEDRIDDEN [None]
  - PULMONARY EMBOLISM [None]
